FAERS Safety Report 4951016-8 (Version None)
Quarter: 2006Q1

REPORT INFORMATION
  Report Type: 
  Country: None (occurrence: None)
  Receive Date: 20060315
  Receipt Date: 20060302
  Transmission Date: 20060701
  Serious: Yes (Other)
  Sender: FDA-Public Use
  Company Number: HQWYE025815DEC05

PATIENT
  Age: 59 Year
  Sex: Male

DRUGS (22)
  1. MYLOTARG [Suspect]
     Indication: ACUTE MYELOID LEUKAEMIA RECURRENT
     Dosage: 16 MG (9 MG/M2/DAY); INTRAVENOUS DRIP
     Route: 041
     Dates: start: 20051130, end: 20051130
  2. MEROPEN (MEROPENEM) [Concomitant]
  3. AMIKACIN SULFATE [Concomitant]
  4. FUNGUARD (MICAFUNGIN SODIUM) [Concomitant]
  5. LEUKOPROL (MIRIMOSTIM) [Concomitant]
  6. TIENAM (CILASTATIN/IMIPENEM) [Concomitant]
  7. OZEK (TOSUFLOXACIN TOSILATE) [Concomitant]
  8. SULFAMETHOXAZOLE + TRIMETHOPRIM [Concomitant]
  9. ITRACONAZOLE [Concomitant]
  10. URSO 250 [Concomitant]
  11. CARBENIN (BETAMIPRON/PANIPENEM) [Concomitant]
  12. VFEND [Concomitant]
  13. HABEKACIN (ARBEKACIN) [Concomitant]
  14. TARGOCID [Concomitant]
  15. TARGOCID [Concomitant]
  16. VANCOMYCIN HYDROCHLORIDE [Concomitant]
  17. STRONG NEO-MINOPHAGEN C (AMINOACETIC ACID/CYSTEINE/GLYCYRRHIZIC ACID) [Concomitant]
  18. ALPROSTADIL [Concomitant]
  19. ZOVIRAX [Concomitant]
  20. FAMOTIDINE [Concomitant]
  21. CLINDAMYCIN HCL [Concomitant]
  22. FUNGIZONE [Concomitant]

REACTIONS (10)
  - ABDOMINAL PAIN [None]
  - ANOREXIA [None]
  - ASCITES [None]
  - DEHYDRATION [None]
  - HEPATITIS [None]
  - HICCUPS [None]
  - INTERSTITIAL LUNG DISEASE [None]
  - LEUKAEMIC INFILTRATION HEPATIC [None]
  - NEUTROPENIC INFECTION [None]
  - VENOOCCLUSIVE LIVER DISEASE [None]
